FAERS Safety Report 6597168-8 (Version None)
Quarter: 2010Q1

REPORT INFORMATION
  Report Type: 
  Country: None (occurrence: None)
  Receive Date: 20100212
  Receipt Date: 20100201
  Transmission Date: 20100710
  Serious: Yes (Hospitalization, Other)
  Sender: FDA-Public Use
  Company Number: 2010SP006820

PATIENT
  Age: 65 Year
  Sex: Male
  Weight: 80.7403 kg

DRUGS (2)
  1. PEG-INTRON [Suspect]
     Indication: HEPATITIS C
     Dosage: ; SC
     Route: 058
     Dates: start: 20091218
  2. REBETOL [Suspect]
     Indication: HEPATITIS C
     Dosage: ; PO
     Route: 048
     Dates: start: 20091218

REACTIONS (9)
  - BACK PAIN [None]
  - BLOOD COUNT ABNORMAL [None]
  - CHEST PAIN [None]
  - COUGH [None]
  - DYSPNOEA [None]
  - INCREASED UPPER AIRWAY SECRETION [None]
  - RENAL PAIN [None]
  - RESPIRATORY DISORDER [None]
  - WEIGHT DECREASED [None]
